FAERS Safety Report 18106866 (Version 1)
Quarter: 2020Q3

REPORT INFORMATION
  Report Type: Spontaneous
  Country: US (occurrence: US)
  Receive Date: 20200804
  Receipt Date: 20200804
  Transmission Date: 20201103
  Serious: Yes (Other)
  Sender: FDA-Public Use
  Company Number: NVSC2020US211725

PATIENT
  Age: 77 Year
  Sex: Male

DRUGS (5)
  1. LABETALOL [Suspect]
     Active Substance: LABETALOL\LABETALOL HYDROCHLORIDE
     Indication: HYPERTENSION
     Dosage: 100 MG, BID
     Route: 065
     Dates: end: 20200622
  2. XTANDI [Suspect]
     Active Substance: ENZALUTAMIDE
     Indication: METASTASES TO BONE
     Dosage: 80 MG, BID
     Route: 048
     Dates: start: 20200621, end: 20200622
  3. LISINOPRIL. [Concomitant]
     Active Substance: LISINOPRIL
     Indication: PRODUCT USED FOR UNKNOWN INDICATION
     Route: 065
  4. XTANDI [Suspect]
     Active Substance: ENZALUTAMIDE
     Indication: PROSTATE CANCER METASTATIC
     Dosage: 80 MG, BID
     Route: 048
     Dates: start: 201902
  5. XTANDI [Suspect]
     Active Substance: ENZALUTAMIDE
     Dosage: 80 MG, BID
     Route: 048
     Dates: start: 20200706

REACTIONS (4)
  - Product availability issue [Unknown]
  - Hypotension [Recovered/Resolved]
  - Loss of consciousness [Unknown]
  - Product size issue [Unknown]

NARRATIVE: CASE EVENT DATE: 20190618
